FAERS Safety Report 9157953 (Version 1)
Quarter: 2013Q1

REPORT INFORMATION
  Report Type: Spontaneous
  Country: US (occurrence: None)
  Receive Date: 20130212
  Receipt Date: 20130212
  Transmission Date: 20140127
  Serious: Yes (Hospitalization)
  Sender: FDA-Public Use
  Company Number: 2013-0202

PATIENT
  Age: 71 Year
  Sex: Male
  Weight: 81.6 kg

DRUGS (20)
  1. CARFILZOMIB [Suspect]
     Indication: PLASMA CELL MYELOMA
     Route: 042
     Dates: start: 20111128, end: 20111128
  2. DEXAMETHASONE (DEXAMETHASONE) (DEXAMETHASONE) [Concomitant]
  3. THALIDOMIDE (THALIDOMIDE) (THALIDOMIDE) [Concomitant]
  4. DOXORUBICIN (DOXORUBICIN) (DOXORUBICIN) [Concomitant]
  5. CISPLATIN (CISPLATIN) (CISPLATIN) [Concomitant]
  6. ACYCLOVIR (ACICLOVIR) (TABLET) (ACICLOVIR) [Concomitant]
  7. LEVAQUIN (LEVOFLOXACIN) (TABLET) (LEVOFLOXACIN) [Concomitant]
  8. DIFLUCAN (FLUCONAZOLE) (TABLET) (FLUCONAZOLE) [Concomitant]
  9. PROTONIX (PANTOPRAZOLE SODIUM SESQUIHYDRATE) (TABLET) (PANTOPRAZOLE SODIUM SESQUIHYDRATE) [Concomitant]
  10. ROCHLOROTHIAZIDE) (TABLET) (HYDROCHLOROTHIAZIDE) [Concomitant]
  11. LISINOPRIL (LISINOPRIL) (TABLET) (LISINOPRIL) [Concomitant]
  12. LEXAPRO (ESCITALOPRAM OXALATE) (TABLET) (ESCITALOPRAM OXALATE) [Concomitant]
  13. POTASSIUM CHLORIDE (POTASSIUM CHLORIDE) (20 MILLIEQUIVALENTS, TABLET) (POTASSIUM CHLORIDE) [Concomitant]
  14. TRAZODONE HCL (TRAZODONE HYDROCHLORIDE) (TABLET) (TRAZODONE HYDROCHLORIDE) [Concomitant]
  15. ATIVAN (LORAZEPAM) (TABLET) (LORAZEPAM) [Concomitant]
  16. DOCUSATE SODIUM (DOCUSATE SODIUM) (CAPSULE) (DOCUSATE SODIUM) [Concomitant]
  17. SENNA (SENNA ALEXANDRINA) (TABLET) (SENNA ALEXANDRINA) [Concomitant]
  18. ONDANSETRON HCL (ONDANSETRON) (TABLET) (ONDANSETRON) [Concomitant]
  19. HYDRALAZINE (HYDRALAZINE) (TABLET) (HYDRALAZINE) [Concomitant]
  20. CLONIDINE HCL (CLONIDINE HYDROCHLORIDE) (TABLET) (CLONIDINE HYDROCHLORIDE) [Concomitant]

REACTIONS (10)
  - Cognitive disorder [None]
  - Confusional state [None]
  - Diplopia [None]
  - Road traffic accident [None]
  - Gait disturbance [None]
  - Nervous system disorder [None]
  - Somnolence [None]
  - Asthenia [None]
  - Blood pressure increased [None]
  - Metastases to meninges [None]
